FAERS Safety Report 6360908-7 (Version None)
Quarter: 2009Q3

REPORT INFORMATION
  Report Type: 
  Country: None (occurrence: None)
  Receive Date: 20090916
  Receipt Date: 20090916
  Transmission Date: 20100115
  Serious: Yes (Hospitalization)
  Sender: FDA-Public Use
  Company Number: None

PATIENT
  Sex: Female

DRUGS (4)
  1. PURSENNID (NCH) (SENNA GLYCOSIDES (CA SALTS OF PURIFIED SENNA EXTRACT) [Suspect]
     Indication: CONSTIPATION
     Dosage: 24 MG, QD, ORAL
     Route: 048
  2. FAMOTIDINE [Concomitant]
  3. MAGNESIUM OXIDE (MAGNESIUM OXIDE) [Concomitant]
  4. URSO 250 [Concomitant]

REACTIONS (2)
  - CEREBRAL HAEMORRHAGE [None]
  - LOSS OF CONSCIOUSNESS [None]
